FAERS Safety Report 17409250 (Version 7)
Quarter: 2021Q1

REPORT INFORMATION
  Report Type: Spontaneous
  Country: HU (occurrence: HU)
  Receive Date: 20200212
  Receipt Date: 20210120
  Transmission Date: 20210419
  Serious: Yes (Death, Life-Threatening, Hospitalization, Other)
  Sender: FDA-Public Use
  Company Number: HU-UCBSA-2020005908

PATIENT
  Age: 37 Year
  Sex: Female

DRUGS (9)
  1. LAMOTRIGINE. [Suspect]
     Active Substance: LAMOTRIGINE
     Dosage: 12.5 MILLIGRAM, ONCE DAILY (QD)
  2. LEVETIRACETAM. [Suspect]
     Active Substance: LEVETIRACETAM
     Indication: PRODUCT USED FOR UNKNOWN INDICATION
     Dosage: UNKNOWN DOSE
  3. LAMICTAL [Suspect]
     Active Substance: LAMOTRIGINE
     Indication: EPILEPSY
     Dosage: 3 WEEKS
  4. VANCOMYCIN [Suspect]
     Active Substance: VANCOMYCIN
     Indication: PRODUCT USED FOR UNKNOWN INDICATION
     Dosage: UNKNOWN DOSE
  5. DEPAKIN CHRONO [VALPROATE SODIUM] [Suspect]
     Active Substance: VALPROATE SODIUM
     Indication: EPILEPSY
     Dosage: 600 MILLIGRAM, ONCE DAILY (QD), IN THE EVENING
  6. VALPROATE SODIUM. [Suspect]
     Active Substance: VALPROATE SODIUM
     Indication: EPILEPSY
  7. EPITRIGINE [Suspect]
     Active Substance: LAMOTRIGINE
     Indication: EPILEPSY
     Dosage: TITRATING UPWARDS FROM A LOW DOSE, INITIALLY AT 12.5 MG/DAY, FOLLOWED BY 25 MG/DAY
     Route: 048
     Dates: start: 201802
  8. DEPAKIN CHRONO [VALPROATE SODIUM] [Suspect]
     Active Substance: VALPROATE SODIUM
     Dosage: 600 MILLIGRAM, ONCE DAILY (QD), IN THE MORNING
  9. LAMOTRIGINE. [Suspect]
     Active Substance: LAMOTRIGINE
     Indication: EPILEPSY
     Dosage: 25 MILLIGRAM

REACTIONS (8)
  - Sepsis [Fatal]
  - Atrial fibrillation [Unknown]
  - Pancytopenia [Unknown]
  - Influenza like illness [Unknown]
  - Renal impairment [Unknown]
  - Respiratory failure [Unknown]
  - Toxic epidermal necrolysis [Not Recovered/Not Resolved]
  - Multiple organ dysfunction syndrome [Fatal]

NARRATIVE: CASE EVENT DATE: 2018
